FAERS Safety Report 7197354-2 (Version None)
Quarter: 2010Q4

REPORT INFORMATION
  Report Type: 
  Country: None (occurrence: None)
  Receive Date: 20101227
  Receipt Date: 20101220
  Transmission Date: 20110411
  Serious: Yes (Other)
  Sender: FDA-Public Use
  Company Number: BR-PFIZER INC-2010134348

PATIENT
  Age: 61 Year
  Sex: Female
  Weight: 108 kg

DRUGS (12)
  1. CHAMPIX [Suspect]
     Indication: TOBACCO USER
     Dosage: 1 MG, 2X/DAY
     Route: 048
     Dates: start: 20100101
  2. PURAN T4 [Concomitant]
     Indication: THYROID DISORDER
     Dosage: 88 MG, 1X/DAY
  3. LASIX [Concomitant]
     Indication: OEDEMA PERIPHERAL
     Dosage: 40 MG, 1X/DAY
  4. PREDNISOLONE [Concomitant]
     Dosage: 2.5 MG, ALTERNATE DAY
     Dates: end: 20101027
  5. SPIRIVA [Concomitant]
     Indication: DYSPNOEA
     Dosage: 2.5 MG, 1X/DAY
  6. FORASEQ [Concomitant]
     Indication: DYSPNOEA
     Dosage: 400 MG, 2X/DAY
     Dates: start: 20020101
  7. RIVOTRIL [Concomitant]
     Indication: ANXIETY DISORDER
     Dosage: 1 MG, 1X/DAY
  8. RIVOTRIL [Concomitant]
     Indication: CRYING
  9. AMLODIPINE [Concomitant]
     Indication: HYPERTENSION
     Dosage: UNK
  10. METFORMIN HYDROCHLORIDE [Concomitant]
     Indication: GLUCOSE TOLERANCE IMPAIRED
     Dosage: UNK
  11. GLUCOSAMINE SULFATE [Concomitant]
     Indication: OSTEOARTHRITIS
     Dosage: UNK
  12. CALCIUM [Concomitant]
     Indication: OSTEOARTHRITIS
     Dosage: UNK

REACTIONS (2)
  - BLOOD PRESSURE FLUCTUATION [None]
  - HYPERTENSION [None]
